FAERS Safety Report 4554882-3 (Version None)
Quarter: 2004Q4

REPORT INFORMATION
  Report Type: 
  Country: None (occurrence: None)
  Receive Date: 20041222
  Receipt Date: 20040923
  Transmission Date: 20050328
  Serious: Yes (Hospitalization)
  Sender: FDA-Public Use
  Company Number: 208984

PATIENT
  Age: 57 Year
  Sex: Male
  Weight: 64.9 kg

DRUGS (6)
  1. AVASTIN [Suspect]
     Indication: COLON CANCER
     Dosage: 339 MG, Q2W, INTRAVENOUS
     Route: 042
     Dates: start: 20040322
  2. FOLIC ACID [Concomitant]
  3. COUMADIN [Concomitant]
  4. MEGACE [Concomitant]
  5. CHROMAGEN (INTRINSIC FACTOR, FERROUS FUMARATE, CYANOCOBALAMIN, ASCORBI [Concomitant]
  6. DYAZIDE [Concomitant]

REACTIONS (1)
  - CONFUSIONAL STATE [None]
